FAERS Safety Report 7698986-5 (Version None)
Quarter: 2011Q3

REPORT INFORMATION
  Report Type: 
  Country: None (occurrence: None)
  Receive Date: 20110819
  Receipt Date: 20110817
  Transmission Date: 20111222
  Serious: Yes (Other)
  Sender: FDA-Public Use
  Company Number: CN-PFIZER INC-2011162600

PATIENT
  Age: 25 Year
  Sex: Male

DRUGS (2)
  1. DEXAMETHASONE [Concomitant]
     Dosage: 60 MG, SINGLE
  2. SOLU-MEDROL [Suspect]
     Indication: PROPHYLAXIS
     Dosage: 12 MG/KG DAILY
     Dates: start: 20110716

REACTIONS (1)
  - TRANSPLANT REJECTION [None]
